FAERS Safety Report 14768747 (Version 30)
Quarter: 2020Q1

REPORT INFORMATION
  Report Type: Report from Study
  Country: CA (occurrence: CA)
  Receive Date: 20180417
  Receipt Date: 20200320
  Transmission Date: 20200409
  Serious: Yes (Other)
  Sender: FDA-Public Use
  Company Number: CA-ROCHE-1173899

PATIENT
  Age: 64 Year
  Sex: Female
  Weight: 72 kg

DRUGS (31)
  1. ACTEMRA [Suspect]
     Active Substance: TOCILIZUMAB
     Route: 042
     Dates: start: 20180620
  2. METHOTREXATE. [Concomitant]
     Active Substance: METHOTREXATE
  3. TARGIN [Concomitant]
     Active Substance: NALOXONE HYDROCHLORIDE\OXYCODONE HYDROCHLORIDE
     Indication: PAIN
     Route: 065
  4. MARIJUANA [Concomitant]
     Active Substance: CANNABIS SATIVA SUBSP. INDICA TOP
     Indication: PRODUCT USED FOR UNKNOWN INDICATION
     Route: 065
  5. FORXIGA [Concomitant]
     Active Substance: DAPAGLIFLOZIN
     Indication: PRODUCT USED FOR UNKNOWN INDICATION
  6. ACTEMRA [Suspect]
     Active Substance: TOCILIZUMAB
     Indication: RHEUMATOID ARTHRITIS
     Route: 042
     Dates: start: 20111019, end: 20120430
  7. KOMBIGLYZE XR [Concomitant]
     Active Substance: METFORMIN HYDROCHLORIDE\SAXAGLIPTIN HYDROCHLORIDE
     Indication: DIABETES MELLITUS
  8. MYRBETRIQ [Concomitant]
     Active Substance: MIRABEGRON
     Indication: PRODUCT USED FOR UNKNOWN INDICATION
  9. LEFLUNOMIDE. [Concomitant]
     Active Substance: LEFLUNOMIDE
     Indication: PRODUCT USED FOR UNKNOWN INDICATION
     Route: 065
  10. ACTEMRA [Suspect]
     Active Substance: TOCILIZUMAB
     Route: 042
     Dates: start: 20180522
  11. ENBREL [Suspect]
     Active Substance: ETANERCEPT
     Indication: PRODUCT USED FOR UNKNOWN INDICATION
     Route: 065
  12. PREDNISONE. [Suspect]
     Active Substance: PREDNISONE
     Indication: PRODUCT USED FOR UNKNOWN INDICATION
     Route: 065
  13. TOUJEO [Concomitant]
     Active Substance: INSULIN GLARGINE
  14. CITALOPRAM [Concomitant]
     Active Substance: CITALOPRAM HYDROBROMIDE
  15. ZOPLICONE [Concomitant]
     Active Substance: ZOPICLONE
     Indication: PRODUCT USED FOR UNKNOWN INDICATION
  16. ATORVASTATIN [Concomitant]
     Active Substance: ATORVASTATIN
     Indication: PRODUCT USED FOR UNKNOWN INDICATION
  17. IRBESARTAN. [Concomitant]
     Active Substance: IRBESARTAN
  18. ACTEMRA [Suspect]
     Active Substance: TOCILIZUMAB
     Route: 042
     Dates: start: 20120822, end: 20160205
  19. ACTONEL [Concomitant]
     Active Substance: RISEDRONATE SODIUM
  20. AVAPRO [Concomitant]
     Active Substance: IRBESARTAN
  21. IRBESARTAN. [Concomitant]
     Active Substance: IRBESARTAN
     Indication: PRODUCT USED FOR UNKNOWN INDICATION
  22. FISH OIL [Concomitant]
     Active Substance: FISH OIL
     Indication: PRODUCT USED FOR UNKNOWN INDICATION
  23. VIT D [Concomitant]
     Active Substance: VITAMIN D NOS
  24. OZEMPIC [Concomitant]
     Active Substance: SEMAGLUTIDE
  25. ACTEMRA [Suspect]
     Active Substance: TOCILIZUMAB
     Route: 042
     Dates: start: 20180104
  26. ACTEMRA [Suspect]
     Active Substance: TOCILIZUMAB
     Route: 042
     Dates: start: 20180424
  27. ACTEMRA [Suspect]
     Active Substance: TOCILIZUMAB
     Route: 042
     Dates: start: 20120627, end: 20120725
  28. ACTEMRA [Suspect]
     Active Substance: TOCILIZUMAB
     Route: 042
     Dates: start: 20120308, end: 20190806
  29. ACTEMRA [Suspect]
     Active Substance: TOCILIZUMAB
     Route: 042
     Dates: start: 20190903
  30. ASA [Concomitant]
     Active Substance: ASPIRIN
     Indication: PRODUCT USED FOR UNKNOWN INDICATION
  31. PANTOPRAZOLE [Concomitant]
     Active Substance: PANTOPRAZOLE
     Indication: PRODUCT USED FOR UNKNOWN INDICATION

REACTIONS (49)
  - Diarrhoea [Recovered/Resolved]
  - Sinusitis [Unknown]
  - Osteoarthritis [Unknown]
  - Feeling hot [Unknown]
  - Nausea [Recovered/Resolved]
  - Skin ulcer [Unknown]
  - Blood pressure increased [Unknown]
  - Blood glucose increased [Not Recovered/Not Resolved]
  - Feeling jittery [Not Recovered/Not Resolved]
  - Feeling hot [Not Recovered/Not Resolved]
  - Heart rate increased [Unknown]
  - Adrenal insufficiency [Unknown]
  - Arthralgia [Not Recovered/Not Resolved]
  - Oedema peripheral [Not Recovered/Not Resolved]
  - Nasopharyngitis [Not Recovered/Not Resolved]
  - Arthralgia [Not Recovered/Not Resolved]
  - Dyspnoea [Not Recovered/Not Resolved]
  - Joint swelling [Recovering/Resolving]
  - Incorrect dose administered [Unknown]
  - Multiple fractures [Unknown]
  - Helicobacter infection [Unknown]
  - Neck pain [Not Recovered/Not Resolved]
  - Peripheral swelling [Recovering/Resolving]
  - Cough [Recovered/Resolved]
  - Underdose [Unknown]
  - Arthropathy [Unknown]
  - Back pain [Unknown]
  - Arthralgia [Not Recovered/Not Resolved]
  - Productive cough [Not Recovered/Not Resolved]
  - Gait disturbance [Unknown]
  - Pain [Recovering/Resolving]
  - Drug ineffective [Unknown]
  - Blood pressure systolic increased [Unknown]
  - Platelet count decreased [Unknown]
  - Weight decreased [Not Recovered/Not Resolved]
  - Oxygen saturation decreased [Unknown]
  - Oedema [Not Recovered/Not Resolved]
  - Dizziness [Unknown]
  - Joint swelling [Unknown]
  - Movement disorder [Unknown]
  - Alanine aminotransferase increased [Unknown]
  - Skin ulcer [Unknown]
  - Disability assessment scale score increased [Unknown]
  - Hypertension [Unknown]
  - Pain in extremity [Unknown]
  - Weight increased [Recovering/Resolving]
  - Skin induration [Unknown]
  - Blood pressure fluctuation [Unknown]
  - Cortisol decreased [Unknown]

NARRATIVE: CASE EVENT DATE: 2012
